FAERS Safety Report 7368722-0 (Version None)
Quarter: 2011Q1

REPORT INFORMATION
  Report Type: 
  Country: None (occurrence: None)
  Receive Date: 20110321
  Receipt Date: 20110321
  Transmission Date: 20110831
  Serious: No
  Sender: FDA-Public Use
  Company Number: None

PATIENT
  Age: 59 Year
  Sex: Male
  Weight: 158.759 kg

DRUGS (2)
  1. FENTANYL [Suspect]
     Indication: PAIN
     Dosage: 75 MCG/HR ONE PATCH/3 DAYS TRANSDERMAL
     Route: 062
     Dates: start: 20040101
  2. FENTANYL [Suspect]
     Indication: FIBROMYALGIA
     Dosage: 75 MCG/HR ONE PATCH/3 DAYS TRANSDERMAL
     Route: 062
     Dates: start: 20040101

REACTIONS (1)
  - DRUG INEFFECTIVE [None]
